FAERS Safety Report 9477811 (Version 1)
Quarter: 2013Q3

REPORT INFORMATION
  Report Type: Spontaneous
  Country: US (occurrence: US)
  Receive Date: 20130827
  Receipt Date: 20130827
  Transmission Date: 20140515
  Serious: Yes (Hospitalization)
  Sender: FDA-Public Use
  Company Number: US-BRISTOL-MYERS SQUIBB COMPANY-19196831

PATIENT
  Age: 74 Year
  Sex: Female

DRUGS (13)
  1. BYETTA [Suspect]
     Indication: TYPE 2 DIABETES MELLITUS
     Route: 058
     Dates: start: 2010, end: 201302
  2. COGENTIN [Concomitant]
  3. ARICEPT [Concomitant]
  4. DULCOLAX [Concomitant]
  5. ALBUTEROL INHALER [Concomitant]
  6. SYSTANE [Concomitant]
  7. CARBAMAZEPINE [Concomitant]
  8. TEMAZEPAM [Concomitant]
  9. LEVOXYL [Concomitant]
  10. NIACIN [Concomitant]
  11. GLYBURIDE [Concomitant]
  12. ACTOS [Concomitant]
  13. SIMVASTATIN [Concomitant]

REACTIONS (1)
  - Pancreatic neuroendocrine tumour [Unknown]
